FAERS Safety Report 9945734 (Version 1)
Quarter: 2014Q1

REPORT INFORMATION
  Report Type: Spontaneous
  Country: US (occurrence: US)
  Receive Date: 20140303
  Receipt Date: 20140303
  Transmission Date: 20141002
  Serious: No
  Sender: FDA-Public Use
  Company Number: US-AMGEN-USASP2013067644

PATIENT
  Age: 53 Year
  Sex: Female
  Weight: 79.37 kg

DRUGS (25)
  1. ENBREL [Suspect]
     Indication: PRODUCT USED FOR UNKNOWN INDICATION
     Dosage: 50 MG, QWK
     Route: 058
     Dates: end: 20130926
  2. SIMVASTATIN [Concomitant]
     Dosage: 20 MG, UNK
  3. CALCIUM [Concomitant]
     Dosage: 500 UNK, UNK
  4. MULTIVITAMIN                       /07504101/ [Concomitant]
     Dosage: UNK
  5. VITAMIN E                          /00110501/ [Concomitant]
     Dosage: 1000 UNIT, UNK
  6. VITAMIN C                          /00008001/ [Concomitant]
     Dosage: 500 MG, UNK
  7. B COMPLEX                          /06817001/ [Concomitant]
     Dosage: UNK
  8. FISH OIL [Concomitant]
     Dosage: UNK
  9. UBIQUINOL [Concomitant]
     Dosage: 100 MG, UNK
  10. COQ 10 [Concomitant]
     Dosage: 100 MG, UNK
  11. LEVOTHYROXIN [Concomitant]
     Dosage: 88 MUG, UNK
  12. HYDROCORTISONE [Concomitant]
     Dosage: 2.5 %, UNK
  13. METHADONE                          /00068902/ [Concomitant]
     Dosage: 10 MG, UNK
  14. SOMA [Concomitant]
     Dosage: 350 MG, UNK
  15. DIAZEPAM [Concomitant]
     Dosage: 5 MG, UNK
  16. VALACYCLOVIR [Concomitant]
     Dosage: 500 MG, UNK
  17. ESTRADIOL [Concomitant]
     Dosage: 2 MG, UNK
  18. NUCYNTA [Concomitant]
     Dosage: 75 MG, UNK
  19. GABAPENTIN [Concomitant]
     Dosage: 800 MG, UNK
  20. FENTANYL                           /00174602/ [Concomitant]
     Dosage: 12 MUG, UNK
  21. NAPROXEN SOD [Concomitant]
     Dosage: 550 MG, UNK
  22. LEXAPRO [Concomitant]
     Dosage: 20 MG, UNK
  23. PHENERGAN                          /00033001/ [Concomitant]
     Dosage: 25 MG, UNK
  24. PROMETHEGAN [Concomitant]
     Dosage: 12.5 MG, UNK
  25. PREMARIN [Concomitant]
     Dosage: UNK

REACTIONS (1)
  - Drug effect decreased [Unknown]
